FAERS Safety Report 17270342 (Version 1)
Quarter: 2020Q1

REPORT INFORMATION
  Report Type: Spontaneous
  Country: CA (occurrence: CA)
  Receive Date: 20200114
  Receipt Date: 20200114
  Transmission Date: 20200409
  Serious: Yes (Other)
  Sender: FDA-Public Use
  Company Number: CA-TEVA-2020-CA-1169932

PATIENT
  Age: 60 Year
  Sex: Male
  Weight: 61 kg

DRUGS (1)
  1. BUPRENORPHINE HYDROCHLORIDE/ NALOXONE HYDROCHLORIDE [Suspect]
     Active Substance: BUPRENORPHINE HYDROCHLORIDE\NALOXONE HYDROCHLORIDE
     Indication: ARTHRALGIA
     Route: 060

REACTIONS (3)
  - Off label use [Unknown]
  - Pruritus [Unknown]
  - Drug withdrawal syndrome [Unknown]
